FAERS Safety Report 15164802 (Version 3)
Quarter: 2018Q4

REPORT INFORMATION
  Report Type: Spontaneous
  Country: US (occurrence: US)
  Receive Date: 20180719
  Receipt Date: 20181203
  Transmission Date: 20190204
  Serious: No
  Sender: FDA-Public Use
  Company Number: US-SA-2018SA192299

PATIENT
  Age: 79 Year
  Sex: Female

DRUGS (3)
  1. ALIROCUMAB PREFILLED PEN [Suspect]
     Active Substance: ALIROCUMAB
     Route: 058
  2. PRALUENT [Suspect]
     Active Substance: ALIROCUMAB
     Route: 058
  3. REPATHA [Concomitant]
     Active Substance: EVOLOCUMAB

REACTIONS (1)
  - Myalgia [Unknown]
